FAERS Safety Report 8780418 (Version 1)
Quarter: 2012Q4

REPORT INFORMATION
  Report Type: Spontaneous
  Country: US (occurrence: None)
  Receive Date: 20120905
  Receipt Date: 20120905
  Transmission Date: 20130627
  Serious: Yes (Life-Threatening, Other)
  Sender: FDA-Public Use
  Company Number: None

PATIENT
  Age: 30 Year
  Sex: Male
  Weight: 125.5 kg

DRUGS (5)
  1. ADDERALL [Suspect]
     Dosage: 1/2 tab qam
     Route: 048
     Dates: start: 20120615, end: 20120703
  2. MELATONIN [Concomitant]
  3. METFORMIN [Concomitant]
  4. PRAVASTATIN [Concomitant]
  5. ROPINIRO [Concomitant]

REACTIONS (6)
  - Abdominal pain [None]
  - Diarrhoea [None]
  - Haematochezia [None]
  - Eosinophilia [None]
  - Anaemia [None]
  - Gastrointestinal disorder [None]
